FAERS Safety Report 5735666-7 (Version None)
Quarter: 2008Q2

REPORT INFORMATION
  Report Type: 
  Country: None (occurrence: None)
  Receive Date: 20080512
  Receipt Date: 20080430
  Transmission Date: 20081010
  Serious: Yes (Other)
  Sender: FDA-Public Use
  Company Number: BE-PFIZER INC-2008038780

PATIENT
  Sex: Female

DRUGS (2)
  1. CHANTIX [Suspect]
     Indication: SMOKING CESSATION THERAPY
     Route: 048
     Dates: start: 20080410, end: 20080413
  2. CHANTIX [Suspect]
     Route: 048
     Dates: start: 20080414, end: 20080417

REACTIONS (4)
  - ABDOMINAL PAIN UPPER [None]
  - DISCOMFORT [None]
  - NAUSEA [None]
  - RECTAL TENESMUS [None]
